FAERS Safety Report 6612311-X (Version None)
Quarter: 2010Q1

REPORT INFORMATION
  Report Type: 
  Country: None (occurrence: None)
  Receive Date: 20100303
  Receipt Date: 20100217
  Transmission Date: 20100710
  Serious: Yes (Other)
  Sender: FDA-Public Use
  Company Number: FR-CELGENEUS-056-21880-10021392

PATIENT
  Sex: Male
  Weight: 85 kg

DRUGS (2)
  1. REVLIMID [Suspect]
     Indication: B-CELL LYMPHOMA
     Route: 048
     Dates: start: 20100208, end: 20100215
  2. R-CHOP [Suspect]
     Indication: B-CELL LYMPHOMA
     Route: 051
     Dates: start: 20100208, end: 20100208

REACTIONS (1)
  - HEPATOTOXICITY [None]
